FAERS Safety Report 24737221 (Version 1)
Quarter: 2024Q4

REPORT INFORMATION
  Report Type: Spontaneous
  Country: US (occurrence: None)
  Receive Date: 20241213
  Receipt Date: 20241213
  Transmission Date: 20250115
  Serious: Yes (Death, Life-Threatening, Hospitalization)
  Sender: Public
  Company Number: None

PATIENT
  Age: 68 Year
  Sex: Male

DRUGS (1)
  1. GADOBUTROL [Suspect]
     Active Substance: GADOBUTROL
     Indication: Magnetic resonance imaging

REACTIONS (9)
  - Contrast media allergy [None]
  - Procedural complication [None]
  - Respiratory depression [None]
  - Anaphylactic reaction [None]
  - Ventricular fibrillation [None]
  - Cardiac arrest [None]
  - Shock [None]
  - Anoxia [None]
  - Brain injury [None]

NARRATIVE: CASE EVENT DATE: 20241017
